FAERS Safety Report 7793832 (Version 2)
Quarter: 2013Q1

REPORT INFORMATION
  Report Type: Spontaneous
  Country: US (occurrence: None)
  Receive Date: 20110105
  Receipt Date: 20130222
  Transmission Date: 20140127
  Serious: Yes (Hospitalization, Other)
  Sender: FDA-Public Use
  Company Number: ACO_21086_2010

PATIENT
  Age: 56 Year
  Sex: Female

DRUGS (7)
  1. AMPYRA [Suspect]
     Indication: PRODUCT USED FOR UNKNOWN INDICATION
     Dosage: 10 MG, Q 12 HRS, ORAL
     Route: 048
     Dates: start: 201010, end: 201012
  2. BETASERON [Concomitant]
  3. TRAMADOL HYDROCHLORIDE [Concomitant]
  4. AMITRIPTYLINE HYDROCHLORIDE [Concomitant]
  5. VITAMIN D (ERGOCALCIFEROL) [Concomitant]
  6. NIASPAN [Concomitant]
  7. SMZ-TMP (SULFAMETHOXAZOLE, TRIMETHOPRIM) [Concomitant]

REACTIONS (5)
  - Transient ischaemic attack [None]
  - Mental status changes [None]
  - Incoherent [None]
  - Drug effect decreased [None]
  - Convulsion [None]
